FAERS Safety Report 6235111-1 (Version None)
Quarter: 2009Q2

REPORT INFORMATION
  Report Type: 
  Country: None (occurrence: None)
  Receive Date: 20090618
  Receipt Date: 20090610
  Transmission Date: 20091009
  Serious: Yes (Other)
  Sender: FDA-Public Use
  Company Number: GB-ASTRAZENECA-2009SE02671

PATIENT
  Age: 48 Year
  Sex: Female
  Weight: 54 kg

DRUGS (3)
  1. AMIAS [Suspect]
     Route: 048
     Dates: start: 20090130, end: 20090520
  2. BISOPROLOL [Concomitant]
     Route: 048
     Dates: start: 20090130
  3. INSULIN [Concomitant]
     Route: 065

REACTIONS (3)
  - ABASIA [None]
  - JOINT SWELLING [None]
  - PAIN [None]
